FAERS Safety Report 12598669 (Version 1)
Quarter: 2016Q3

REPORT INFORMATION
  Report Type: Spontaneous
  Country: FR (occurrence: FR)
  Receive Date: 20160726
  Receipt Date: 20160726
  Transmission Date: 20161109
  Serious: Yes (Other)
  Sender: FDA-Public Use
  Company Number: FR-MYLANLABS-2014M1010335

PATIENT

DRUGS (2)
  1. MYLAN ATENOLOL [Suspect]
     Active Substance: ATENOLOL
     Dosage: 50 MG, QD
     Dates: start: 201109, end: 201307
  2. MYLAN ATENOLOL [Suspect]
     Active Substance: ATENOLOL
     Indication: AORTIC VALVE STENOSIS
     Dosage: 75 MG, QD
     Dates: start: 201307, end: 201407

REACTIONS (3)
  - Hypoglycaemia [Unknown]
  - Hypotension [Unknown]
  - Growth retardation [Unknown]

NARRATIVE: CASE EVENT DATE: 201307
